FAERS Safety Report 16829713 (Version 1)
Quarter: 2019Q3

REPORT INFORMATION
  Report Type: Spontaneous
  Country: FR (occurrence: FR)
  Receive Date: 20190919
  Receipt Date: 20190919
  Transmission Date: 20191005
  Serious: Yes (Hospitalization)
  Sender: FDA-Public Use
  Company Number: FR-009507513-1909FRA006177

PATIENT
  Age: 61 Year
  Sex: Male

DRUGS (1)
  1. KEYTRUDA [Suspect]
     Active Substance: PEMBROLIZUMAB
     Indication: BLADDER CANCER
     Dosage: 200 MILLIGRAM, Q3W
     Route: 041
     Dates: start: 20180910, end: 20190612

REACTIONS (3)
  - Lipase increased [Recovered/Resolved]
  - Oedema peripheral [Recovered/Resolved]
  - Scrotal oedema [Recovered/Resolved]

NARRATIVE: CASE EVENT DATE: 201906
